FAERS Safety Report 23464355 (Version 3)
Quarter: 2024Q3

REPORT INFORMATION
  Report Type: Spontaneous
  Country: US (occurrence: US)
  Receive Date: 20240201
  Receipt Date: 20240805
  Transmission Date: 20241016
  Serious: Yes (Other)
  Sender: BRISTOL MYERS SQUIBB
  Company Number: US-BRISTOL-MYERS SQUIBB COMPANY-2024-014372

PATIENT
  Age: 70 Year
  Sex: Male
  Weight: 72.12 kg

DRUGS (3)
  1. REVLIMID [Suspect]
     Active Substance: LENALIDOMIDE
     Indication: Plasma cell myeloma
     Route: 048
  2. REVLIMID [Suspect]
     Active Substance: LENALIDOMIDE
     Dosage: 3WKSON,1WKOFF
     Route: 048
  3. REVLIMID [Suspect]
     Active Substance: LENALIDOMIDE
     Route: 048
     Dates: start: 20220901

REACTIONS (5)
  - Myocardial infarction [Unknown]
  - Neuropathy peripheral [Unknown]
  - Memory impairment [Unknown]
  - Disturbance in attention [Unknown]
  - Off label use [Unknown]

NARRATIVE: CASE EVENT DATE: 20240101
